FAERS Safety Report 9842632 (Version 1)
Quarter: 2013Q4

REPORT INFORMATION
  Report Type: Spontaneous
  Country: US (occurrence: None)
  Receive Date: 20131223
  Receipt Date: 20131223
  Transmission Date: 20140711
  Serious: No
  Sender: FDA-Public Use
  Company Number: 218956LEO

PATIENT
  Age: 38 Year
  Sex: Female

DRUGS (2)
  1. PICATO (0.05%, GEL) [Suspect]
     Indication: ACTINIC KERATOSIS
     Dosage: 1 IN 1 D, ON FACE
     Route: 048
     Dates: start: 20120912, end: 20120913
  2. WELLBUTRIN (BUPROPION) [Concomitant]

REACTIONS (4)
  - Blister [None]
  - Erythema [None]
  - Off label use [None]
  - Incorrect dose administered [None]
